FAERS Safety Report 21820398 (Version 1)
Quarter: 2023Q1

REPORT INFORMATION
  Report Type: Report from Study
  Country: US (occurrence: US)
  Receive Date: 20230105
  Receipt Date: 20230105
  Transmission Date: 20230418
  Serious: No
  Sender: FDA-Public Use
  Company Number: US-ABBVIE-4258036

PATIENT
  Sex: Female

DRUGS (2)
  1. IMBRUVICA [Suspect]
     Active Substance: IBRUTINIB
     Indication: Chronic lymphocytic leukaemia
     Dosage: DRUG START DATE 01 OCT 2022,?STRENGTH:420MG
     Route: 048
     Dates: end: 2022
  2. IMBRUVICA [Suspect]
     Active Substance: IBRUTINIB
     Indication: Chronic lymphocytic leukaemia
     Dosage: STRENGTH:280MG
     Route: 048
     Dates: start: 20221225

REACTIONS (3)
  - Rhinorrhoea [Unknown]
  - Cough [Unknown]
  - Nasal mucosal disorder [Not Recovered/Not Resolved]

NARRATIVE: CASE EVENT DATE: 20220101
